FAERS Safety Report 8571772-X (Version None)
Quarter: 2012Q3

REPORT INFORMATION
  Report Type: 
  Country: None (occurrence: None)
  Receive Date: 20120806
  Receipt Date: 20120725
  Transmission Date: 20120928
  Serious: Yes (Other)
  Sender: FDA-Public Use
  Company Number: JP-BAYER-2012-075229

PATIENT
  Age: 26 Year
  Sex: Male
  Weight: 54 kg

DRUGS (4)
  1. TACROLIMUS [Concomitant]
     Indication: PROPHYLAXIS AGAINST GRAFT VERSUS HOST DISEASE
     Dosage: DAILY DOSE .06 MG/H
     Route: 042
  2. NIFEDIPINE [Suspect]
     Dosage: DAILY DOSE 20 MG
     Route: 048
  3. TACROLIMUS [Concomitant]
     Dosage: DAILY DOSE .09 MG/H
     Route: 042
  4. THYMOGLOBULIN [Concomitant]
     Dosage: UNK

REACTIONS (2)
  - ENCEPHALOPATHY [None]
  - DRUG LEVEL INCREASED [None]
